FAERS Safety Report 5577757-X (Version None)
Quarter: 2007Q4

REPORT INFORMATION
  Report Type: 
  Country: None (occurrence: None)
  Receive Date: 20071130
  Receipt Date: 20070623
  Transmission Date: 20080405
  Serious: No
  Sender: FDA-Public Use
  Company Number: US200707000184

PATIENT
  Age: 75 Year
  Sex: Male

DRUGS (2)
  1. BYETTA [Suspect]
     Dosage: 5 UG, 2/D, SUBCUTANEOUS
     Route: 058
     Dates: start: 20070601
  2. HUMALOG MIX /01500801/ (INSULIN LISPRO, INSULIN LISPRO PROTAMINE SUSPE [Concomitant]

REACTIONS (2)
  - BLOOD GLUCOSE DECREASED [None]
  - SENSORY DISTURBANCE [None]
